FAERS Safety Report 4555085-9 (Version None)
Quarter: 2005Q1

REPORT INFORMATION
  Report Type: 
  Country: None (occurrence: None)
  Receive Date: 20041228
  Receipt Date: 20040928
  Transmission Date: 20050727
  Serious: Yes (Hospitalization, Disabling)
  Sender: FDA-Public Use
  Company Number: PHEH2004US10508

PATIENT
  Age: 91 Year
  Sex: Female
  Weight: 45.4 kg

DRUGS (5)
  1. AREDIA [Suspect]
     Indication: BREAST CANCER METASTATIC
     Dosage: QMO, INFUSION
  2. PREVACID [Concomitant]
  3. LISINOPRIL [Concomitant]
  4. CALCIUM GLUCONATE [Concomitant]
  5. FERROUS SULFATE TAB [Concomitant]

REACTIONS (8)
  - ACTINOMYCOSIS [None]
  - IMPAIRED HEALING [None]
  - OSTEOMYELITIS [None]
  - OSTEONECROSIS [None]
  - SEQUESTRECTOMY [None]
  - TOOTH EXTRACTION [None]
  - WOUND DEBRIDEMENT [None]
  - WOUND DRAINAGE [None]
